FAERS Safety Report 7999117-4 (Version None)
Quarter: 2011Q4

REPORT INFORMATION
  Report Type: 
  Country: None (occurrence: None)
  Receive Date: 20111221
  Receipt Date: 20111219
  Transmission Date: 20120403
  Serious: Yes (Other)
  Sender: FDA-Public Use
  Company Number: DE-PFIZER INC-2011307619

PATIENT
  Sex: Female

DRUGS (2)
  1. CYMBALTA [Concomitant]
  2. ZIPRASIDONE HYDROCHLORIDE [Suspect]
     Dosage: UNK
     Dates: start: 20100701

REACTIONS (2)
  - MACULOPATHY [None]
  - VISUAL ACUITY REDUCED [None]
